FAERS Safety Report 5902750-4 (Version None)
Quarter: 2008Q3

REPORT INFORMATION
  Report Type: 
  Country: None (occurrence: None)
  Receive Date: 20080930
  Receipt Date: 20080926
  Transmission Date: 20090109
  Serious: Yes (Other)
  Sender: FDA-Public Use
  Company Number: JP-JNJFOC-20080906695

PATIENT
  Age: 82 Year
  Sex: Male

DRUGS (1)
  1. ITRIZOLE [Suspect]
     Indication: OESOPHAGEAL CANDIDIASIS
     Route: 048

REACTIONS (2)
  - ATRIOVENTRICULAR BLOCK [None]
  - SICK SINUS SYNDROME [None]
